FAERS Safety Report 7414903-7 (Version None)
Quarter: 2011Q2

REPORT INFORMATION
  Report Type: 
  Country: None (occurrence: None)
  Receive Date: 20110414
  Receipt Date: 20110408
  Transmission Date: 20111010
  Serious: Yes (Hospitalization)
  Sender: FDA-Public Use
  Company Number: US-GENZYME-CERZ-1002008

PATIENT
  Sex: Male

DRUGS (2)
  1. CEREZYME [Suspect]
     Indication: GAUCHER'S DISEASE
     Dosage: 60 U/KG, Q2W
     Route: 042
  2. CEREZYME [Suspect]
     Dosage: 53 U/KG, Q2W
     Route: 042
     Dates: start: 19990101, end: 20050101

REACTIONS (2)
  - BACK PAIN [None]
  - PAIN IN EXTREMITY [None]
